FAERS Safety Report 19394194 (Version 1)
Quarter: 2021Q2

REPORT INFORMATION
  Report Type: Spontaneous
  Country: CN (occurrence: CN)
  Receive Date: 20210609
  Receipt Date: 20210609
  Transmission Date: 20210717
  Serious: Yes (Hospitalization)
  Sender: FDA-Public Use
  Company Number: CN-ABBVIE-21P-035-3940331-00

PATIENT
  Age: 38 Year
  Sex: Male
  Weight: 75 kg

DRUGS (5)
  1. AMOXICILLIN. [Suspect]
     Active Substance: AMOXICILLIN
     Indication: GASTROOESOPHAGEAL REFLUX DISEASE
     Route: 065
     Dates: start: 2021, end: 2021
  2. AMOXICILLIN. [Suspect]
     Active Substance: AMOXICILLIN
     Indication: HELICOBACTER INFECTION
     Dosage: DAILY DOSE: 2 GRAM
     Route: 048
     Dates: start: 20210517, end: 20210518
  3. ILAPRAZOLE [Concomitant]
     Active Substance: ILAPRAZOLE
     Indication: HELICOBACTER INFECTION
     Dosage: ALDENON (ILAPRAZOLE ENTERIC?COATED TABLETS): DAILY DOSE: 10 MILLIGRAM
     Route: 048
     Dates: start: 20210517, end: 20210518
  4. ILAPRAZOLE [Concomitant]
     Active Substance: ILAPRAZOLE
     Indication: GASTROOESOPHAGEAL REFLUX DISEASE
     Dates: start: 2021
  5. KLACID [Suspect]
     Active Substance: CLARITHROMYCIN
     Indication: HELICOBACTER INFECTION
     Dosage: DAILY DOSE: 0.5 GRAM
     Route: 048
     Dates: start: 20210517, end: 20210518

REACTIONS (1)
  - Drug eruption [Recovered/Resolved]

NARRATIVE: CASE EVENT DATE: 20210518
